FAERS Safety Report 20807545 (Version 3)
Quarter: 2022Q2

REPORT INFORMATION
  Report Type: Spontaneous
  Country: ES (occurrence: ES)
  Receive Date: 20220510
  Receipt Date: 20220527
  Transmission Date: 20220721
  Serious: Yes (Other)
  Sender: FDA-Public Use
  Company Number: None

PATIENT
  Age: 55 Year
  Sex: Female
  Weight: 60 kg

DRUGS (9)
  1. PAXLOVID [Suspect]
     Active Substance: NIRMATRELVIR\RITONAVIR
     Indication: COVID-19
     Dosage: 150MG AND 100 MG FILM-COATED TABLETS, 30 (20 PLUS 10) TABLETS
     Route: 048
     Dates: start: 20220426, end: 20220430
  2. PAXLOVID [Suspect]
     Active Substance: NIRMATRELVIR\RITONAVIR
     Indication: COVID-19
     Dosage: 150MG AND 100 MG FILM-COATED TABLETS, 30 (20 PLUS 10) TABLETS
     Route: 048
     Dates: start: 20220426, end: 20220430
  3. SOLIRIS [Suspect]
     Active Substance: ECULIZUMAB
     Indication: Paroxysmal nocturnal haemoglobinuria
     Dosage: SOLIRIS 300 MG CONCENTRATE FOR SOLUTION FOR INFUSION
     Route: 065
     Dates: start: 20100513
  4. AZACITIDINE [Suspect]
     Active Substance: AZACITIDINE
     Indication: Myelodysplastic syndrome
     Dosage: 120 MG/5 DAYS IN CYCLES OF 28 DAYS
     Route: 058
     Dates: start: 20220221
  5. HIBOR [Concomitant]
     Indication: Product used for unknown indication
     Dates: start: 20220427
  6. FOLICON [Concomitant]
     Indication: Product used for unknown indication
     Dates: start: 20190927
  7. MEDEBIOTIN [Concomitant]
     Indication: Product used for unknown indication
     Dosage: STRONG TABLETS, 40 TABLETS
     Dates: start: 20161122
  8. SINTROM [Concomitant]
     Active Substance: ACENOCOUMAROL
     Indication: Product used for unknown indication
     Dates: start: 20150910, end: 20220426
  9. CALCIUM CARBONATE\CHOLECALCIFEROL [Concomitant]
     Active Substance: CALCIUM CARBONATE\CHOLECALCIFEROL
     Indication: Product used for unknown indication
     Dosage: 600 MG/1000 IU BUCODISPERSABLES TABLETS, 30 TABLETS
     Dates: start: 20200416

REACTIONS (2)
  - Dyspepsia [Unknown]
  - Pancytopenia [Unknown]

NARRATIVE: CASE EVENT DATE: 20220427
